APPROVED DRUG PRODUCT: MEFENAMIC ACID
Active Ingredient: MEFENAMIC ACID
Strength: 250MG
Dosage Form/Route: CAPSULE;ORAL
Application: A090359 | Product #001
Applicant: MPP PHARMA LLC
Approved: Feb 5, 2013 | RLD: No | RS: No | Type: DISCN